FAERS Safety Report 8936753 (Version 2)
Quarter: 2014Q2

REPORT INFORMATION
  Report Type: Spontaneous
  Country: US (occurrence: US)
  Receive Date: 20121130
  Receipt Date: 20131024
  Transmission Date: 20141212
  Serious: No
  Sender: FDA-Public Use
  Company Number: US-PFIZER INC-2012301068

PATIENT
  Age: 60 Year
  Sex: Female

DRUGS (10)
  1. IBUPROFEN [Suspect]
     Dosage: UNK
  2. MORPHINE SULFATE [Suspect]
     Dosage: UNK
  3. LANSOPRAZOLE [Suspect]
     Dosage: UNK
  4. OMEPRAZOLE [Suspect]
     Dosage: UNK
  5. ASA [Suspect]
     Dosage: UNK
  6. HYDROCODONE [Suspect]
     Dosage: UNK
  7. ACETAMINOPHEN [Suspect]
     Dosage: UNK
  8. ACIPHEX [Suspect]
     Dosage: UNK
  9. ZANTAC [Suspect]
     Dosage: UNK
  10. TETANUS TOXOID [Suspect]
     Dosage: UNK

REACTIONS (1)
  - Drug hypersensitivity [Unknown]
